FAERS Safety Report 6981081-8 (Version None)
Quarter: 2010Q3

REPORT INFORMATION
  Report Type: 
  Country: None (occurrence: None)
  Receive Date: 20100914
  Receipt Date: 20100901
  Transmission Date: 20110219
  Serious: Yes (Other)
  Sender: FDA-Public Use
  Company Number: BR-SANOFI-AVENTIS-2009SA006590

PATIENT
  Age: 47 Year
  Sex: Female
  Weight: 85 kg

DRUGS (13)
  1. BLINDED THERAPY [Suspect]
     Indication: PULMONARY EMBOLISM
     Dates: start: 20090917
  2. ENOXAPARIN SODIUM [Suspect]
     Indication: PULMONARY EMBOLISM
     Route: 058
     Dates: start: 20090917, end: 20090922
  3. ENALAPRIL [Concomitant]
     Indication: HYPERTENSION
     Dates: start: 20080101, end: 20090930
  4. DIAZEPAM [Concomitant]
     Indication: ANXIETY
     Dates: start: 20090916, end: 20090916
  5. DIAZEPAM [Concomitant]
     Dates: start: 20090917, end: 20090918
  6. HYDROCHLOROTHIAZIDE [Concomitant]
     Indication: HYPERTENSION
     Dates: start: 20090918, end: 20090925
  7. TYLENOL [Concomitant]
     Indication: PAIN
     Dates: start: 20090919, end: 20090919
  8. TAMARINE [Concomitant]
     Indication: CONSTIPATION
     Dates: start: 20090922, end: 20090925
  9. ACETAMINOPHEN [Concomitant]
     Indication: PAIN
     Dates: start: 20090920, end: 20090921
  10. ONDANSETRON [Concomitant]
     Indication: VOMITING
     Dates: start: 20090917, end: 20090918
  11. ONDANSETRON [Concomitant]
     Dates: start: 20090920, end: 20090921
  12. NOVALGINA [Concomitant]
     Indication: PAIN
     Dates: start: 20090917, end: 20090919
  13. CAPOTEN [Concomitant]
     Indication: HYPERTENSION
     Dates: start: 20090918, end: 20090918

REACTIONS (1)
  - ACCIDENTAL OVERDOSE [None]
